FAERS Safety Report 15258007 (Version 4)
Quarter: 2019Q1

REPORT INFORMATION
  Report Type: Spontaneous
  Country: JP (occurrence: JP)
  Receive Date: 20180808
  Receipt Date: 20190212
  Transmission Date: 20190417
  Serious: Yes (Death, Life-Threatening, Hospitalization, Other)
  Sender: FDA-Public Use
  Company Number: JP-BRISTOL-MYERS SQUIBB COMPANY-BMS-2018-073227

PATIENT
  Age: 79 Year
  Sex: Male
  Weight: 48.6 kg

DRUGS (6)
  1. URSO [Concomitant]
     Active Substance: URSODIOL
     Indication: LIVER DISORDER
     Dosage: 100 MG, Q8H
     Route: 048
  2. GASMOTIN [Concomitant]
     Active Substance: MOSAPRIDE CITRATE
     Indication: ABDOMINAL DISCOMFORT
     Dosage: 5 MG, Q8H
     Route: 048
  3. FENELMIN [Concomitant]
     Indication: ANAEMIA
     Dosage: 50 MG, Q12H
     Route: 048
  4. OPDIVO [Suspect]
     Active Substance: NIVOLUMAB
     Indication: GASTRIC CANCER
     Dosage: 3 MG/KG, (150 MG)
     Route: 041
     Dates: start: 20180508, end: 20180828
  5. TAKECAB [Concomitant]
     Active Substance: VONOPRAZAN FUMURATE
     Indication: ABDOMINAL DISCOMFORT
     Dosage: 20 MG, QD
     Route: 048
  6. MAGNESIUM OXIDE. [Concomitant]
     Active Substance: MAGNESIUM OXIDE
     Indication: CONSTIPATION
     Dosage: 330 MG, Q8H
     Route: 048

REACTIONS (5)
  - Malignant neoplasm progression [Fatal]
  - Pain [Unknown]
  - Cholangitis sclerosing [Recovering/Resolving]
  - Abdominal pain [Unknown]
  - Vomiting [Unknown]

NARRATIVE: CASE EVENT DATE: 20180730
